FAERS Safety Report 14720320 (Version 1)
Quarter: 2018Q2

REPORT INFORMATION
  Report Type: Spontaneous
  Country: US (occurrence: US)
  Receive Date: 20180405
  Receipt Date: 20180405
  Transmission Date: 20180711
  Serious: Yes (Other)
  Sender: FDA-Public Use
  Company Number: US-BAYER-2018-059956

PATIENT
  Sex: Male

DRUGS (1)
  1. BAYER ASPIRIN [Suspect]
     Active Substance: ASPIRIN
     Indication: ARTHRALGIA
     Dosage: UNK
     Route: 065

REACTIONS (8)
  - Drug abuse [Unknown]
  - Drug ineffective [Unknown]
  - Haematochezia [Unknown]
  - Feeling cold [Unknown]
  - Insomnia [Unknown]
  - Incorrect dosage administered [Unknown]
  - Somnolence [Unknown]
  - Drug dependence [Unknown]
